FAERS Safety Report 19776150 (Version 1)
Quarter: 2021Q3

REPORT INFORMATION
  Report Type: Spontaneous
  Country: KR (occurrence: KR)
  Receive Date: 20210902
  Receipt Date: 20210902
  Transmission Date: 20211014
  Serious: Yes (Other)
  Sender: FDA-Public Use
  Company Number: KR-LUPIN PHARMACEUTICALS INC.-2021-16175

PATIENT
  Age: 23 Year
  Sex: Female

DRUGS (8)
  1. RIFAMPIN. [Suspect]
     Active Substance: RIFAMPIN
     Indication: DRUG PROVOCATION TEST
     Dosage: 10 MILLILITER, BID (SUSPENSION)
     Route: 048
  2. MOXIFLOXACIN. [Suspect]
     Active Substance: MOXIFLOXACIN
     Dosage: 10 MILLILITER, EVERY HOUR (SOLUTION)
     Route: 048
  3. MOXIFLOXACIN. [Suspect]
     Active Substance: MOXIFLOXACIN
     Indication: DRUG PROVOCATION TEST
     Dosage: 1 MILLILITER, EVERY HOUR (SOLUTION)
     Route: 048
  4. PYRAZINAMIDE. [Suspect]
     Active Substance: PYRAZINAMIDE
     Indication: DRUG PROVOCATION TEST
     Dosage: 10 MILLILITER, BID (SUSPENSION)
     Route: 048
  5. MOXIFLOXACIN. [Suspect]
     Active Substance: MOXIFLOXACIN
     Dosage: 3 MILLILITER, EVERY HOUR (SOLUTION)
     Route: 048
  6. PYRAZINAMIDE. [Suspect]
     Active Substance: PYRAZINAMIDE
     Dosage: 30 MILLILITER, BID (SUSPENSION)
     Route: 048
  7. MOXIFLOXACIN. [Suspect]
     Active Substance: MOXIFLOXACIN
     Dosage: 56 MILLILITER, EVERY HOUR (SOLUTION)
     Route: 048
  8. RIFAMPIN. [Suspect]
     Active Substance: RIFAMPIN
     Dosage: 30 MILLILITER, BID (SUSPENSION)
     Route: 048

REACTIONS (4)
  - Rash maculo-papular [Unknown]
  - Type IV hypersensitivity reaction [Unknown]
  - Anaphylactic reaction [Unknown]
  - Type I hypersensitivity [Unknown]
